FAERS Safety Report 6887459-5 (Version None)
Quarter: 2010Q3

REPORT INFORMATION
  Report Type: 
  Country: None (occurrence: None)
  Receive Date: 20100730
  Receipt Date: 20100727
  Transmission Date: 20110219
  Serious: Yes (Hospitalization)
  Sender: FDA-Public Use
  Company Number: FR-WYE-G06217610

PATIENT
  Age: 77 Year
  Sex: Female
  Weight: 92 kg

DRUGS (9)
  1. PIPERACILLIN AND TAZOBACTAM [Suspect]
     Dosage: UNKNOWN
     Route: 042
     Dates: start: 20100325, end: 20100402
  2. FLUCONAZOLE [Concomitant]
     Dosage: UNKNOWN
     Dates: start: 20100320, end: 20100409
  3. VOLTAREN [Concomitant]
     Dosage: UNKNOWN
  4. NEXIUM [Concomitant]
     Dosage: UNKNOWN
  5. CYSTINE B6 BAILLEUL [Concomitant]
     Dosage: UNKNOWN
     Route: 048
  6. COKENZEN [Concomitant]
     Dosage: UNKNOWN
     Route: 048
  7. ZANIDIP [Concomitant]
     Dosage: UNKNOWN
     Route: 048
  8. ZYVOX [Suspect]
     Dosage: UNKNOWN
     Route: 042
     Dates: start: 20100325, end: 20100402
  9. IXPRIM [Concomitant]
     Dosage: UNKNOWN
     Route: 048

REACTIONS (2)
  - HEPATIC FIBROSIS [None]
  - HEPATITIS TOXIC [None]
